FAERS Safety Report 4419727-0 (Version None)
Quarter: 2004Q3

REPORT INFORMATION
  Report Type: 
  Country: None (occurrence: None)
  Receive Date: 20040804
  Receipt Date: 20040712
  Transmission Date: 20050211
  Serious: Yes (Death)
  Sender: FDA-Public Use
  Company Number: JP_040703779

PATIENT
  Age: 85 Year
  Sex: Male

DRUGS (1)
  1. PERMAX [Suspect]
     Dosage: 150 UG DAY

REACTIONS (1)
  - SUDDEN DEATH [None]
